FAERS Safety Report 9697055 (Version 1)
Quarter: 2013Q4

REPORT INFORMATION
  Report Type: Spontaneous
  Country: BR (occurrence: BR)
  Receive Date: 20131120
  Receipt Date: 20131120
  Transmission Date: 20140711
  Serious: Yes (Death, Hospitalization)
  Sender: FDA-Public Use
  Company Number: BR-ROCHE-1304501

PATIENT
  Age: 66 Year
  Sex: Female

DRUGS (2)
  1. AVASTIN [Suspect]
     Indication: UTERINE CANCER
     Route: 065
  2. AVASTIN [Suspect]
     Indication: OVARIAN CANCER

REACTIONS (1)
  - Disease progression [Fatal]
